FAERS Safety Report 5489439-3 (Version None)
Quarter: 2007Q4

REPORT INFORMATION
  Report Type: 
  Country: None (occurrence: None)
  Receive Date: 20071018
  Receipt Date: 20071004
  Transmission Date: 20080405
  Serious: Yes (Death)
  Sender: FDA-Public Use
  Company Number: PL-GENENTECH-248592

PATIENT
  Sex: Male
  Weight: 99 kg

DRUGS (7)
  1. AVASTIN [Suspect]
     Indication: COLON CANCER
     Dosage: UNK, Q2W
     Route: 042
  2. FLUOROURACIL [Suspect]
     Indication: COLON CANCER
     Dosage: UNK, Q2W
     Dates: start: 20060207
  3. FOLINIC ACID [Concomitant]
     Indication: DRUG USE FOR UNKNOWN INDICATION
     Dates: start: 20060207
  4. TRAMADOL HCL [Concomitant]
     Indication: DRUG USE FOR UNKNOWN INDICATION
     Dates: start: 20070507
  5. ESTAZOLAM [Concomitant]
     Indication: DRUG USE FOR UNKNOWN INDICATION
  6. MILURIT [Concomitant]
     Indication: DRUG USE FOR UNKNOWN INDICATION
  7. KETONAL [Concomitant]
     Indication: DRUG USE FOR UNKNOWN INDICATION

REACTIONS (5)
  - BLOOD URIC ACID INCREASED [None]
  - DEATH [None]
  - DISEASE PROGRESSION [None]
  - INSOMNIA [None]
  - TACHYCARDIA [None]
